FAERS Safety Report 4978445-0 (Version None)
Quarter: 2006Q2

REPORT INFORMATION
  Report Type: 
  Country: None (occurrence: None)
  Receive Date: 20060420
  Receipt Date: 20051128
  Transmission Date: 20061013
  Serious: Yes (Hospitalization)
  Sender: FDA-Public Use
  Company Number: JP-BOEHRINGER INGELHEIM PHARMACEUTICALS, INC.-2005-BP-21156YA

PATIENT
  Age: 68 Year
  Sex: Male

DRUGS (2)
  1. HARNAL (TAMSULOSIN) ORODISPERSABLE CR [Suspect]
     Indication: DYSURIA
     Route: 048
     Dates: start: 20051112, end: 20051126
  2. BLADDERON [Concomitant]
     Route: 048
     Dates: start: 20051112, end: 20051126

REACTIONS (7)
  - ALANINE AMINOTRANSFERASE INCREASED [None]
  - ASPARTATE AMINOTRANSFERASE INCREASED [None]
  - BLOOD LACTATE DEHYDROGENASE INCREASED [None]
  - GAMMA-GLUTAMYLTRANSFERASE INCREASED [None]
  - HEPATIC FUNCTION ABNORMAL [None]
  - URTICARIA [None]
  - WHITE BLOOD CELL COUNT INCREASED [None]
